FAERS Safety Report 10410261 (Version 1)
Quarter: 2014Q3

REPORT INFORMATION
  Report Type: Spontaneous
  Country: US (occurrence: None)
  Receive Date: 20140825
  Receipt Date: 20140825
  Transmission Date: 20150326
  Serious: Yes (Hospitalization)
  Sender: FDA-Public Use
  Company Number: None

PATIENT
  Age: 68 Year
  Sex: Female
  Weight: 54.43 kg

DRUGS (1)
  1. CIPROFLOXACIN HYDROCHLORIDE. [Suspect]
     Active Substance: CIPROFLOXACIN HYDROCHLORIDE
     Indication: URINARY TRACT INFECTION
     Route: 048
     Dates: start: 20140813, end: 20140820

REACTIONS (8)
  - Dizziness [None]
  - Fall [None]
  - Dysarthria [None]
  - Head injury [None]
  - Aggression [None]
  - Belligerence [None]
  - Agitation [None]
  - Balance disorder [None]

NARRATIVE: CASE EVENT DATE: 20140813
